FAERS Safety Report 4275079-0 (Version None)
Quarter: 2004Q1

REPORT INFORMATION
  Report Type: 
  Country: None (occurrence: None)
  Receive Date: 20040116
  Receipt Date: 20040107
  Transmission Date: 20041129
  Serious: Yes (Hospitalization)
  Sender: FDA-Public Use
  Company Number: 2003121580

PATIENT
  Age: 63 Year
  Sex: Male

DRUGS (4)
  1. NORVASC [Suspect]
     Indication: HYPERTENSION
     Dosage: ORAL
     Route: 048
     Dates: start: 20030901
  2. LIPITOR [Suspect]
     Indication: HYPERCHOLESTEROLAEMIA
     Dosage: ORAL
     Route: 048
     Dates: start: 20030901
  3. FAMOTIDINE [Concomitant]
  4. ACETYLSALICYLIC ACID SRT [Concomitant]

REACTIONS (4)
  - ANGINA PECTORIS [None]
  - BACK PAIN [None]
  - DISTURBANCE IN ATTENTION [None]
  - ELECTROCARDIOGRAM ABNORMAL [None]
